FAERS Safety Report 8363542-2 (Version None)
Quarter: 2012Q2

REPORT INFORMATION
  Report Type: 
  Country: None (occurrence: None)
  Receive Date: 20120514
  Receipt Date: 20120427
  Transmission Date: 20120825
  Serious: Yes (Other)
  Sender: FDA-Public Use
  Company Number: 2012US-56140

PATIENT
  Age: 59 Year
  Sex: Female

DRUGS (1)
  1. NITROFURANTOIN [Suspect]
     Indication: URINARY RETENTION
     Dosage: 100MG/DAY

REACTIONS (7)
  - DYSAESTHESIA [None]
  - FATIGUE [None]
  - PHOTOSENSITIVITY REACTION [None]
  - NEUROTOXICITY [None]
  - DRUG EFFECT DECREASED [None]
  - LIVEDO RETICULARIS [None]
  - WEIGHT DECREASED [None]
